FAERS Safety Report 14075380 (Version 3)
Quarter: 2017Q4

REPORT INFORMATION
  Report Type: Spontaneous
  Country: AT (occurrence: AT)
  Receive Date: 20171010
  Receipt Date: 20171206
  Transmission Date: 20180321
  Serious: Yes (Other)
  Sender: FDA-Public Use
  Company Number: AT-INTERCEPT-PMOCA2017001067

PATIENT

DRUGS (8)
  1. URSOFALK [Concomitant]
     Active Substance: URSODIOL
     Dosage: 500 MG, BID
     Dates: start: 201610, end: 20161224
  2. OCALIVA [Suspect]
     Active Substance: OBETICHOLIC ACID
     Dosage: 10 MG, QW
     Route: 065
     Dates: start: 20170124
  3. OCALIVA [Suspect]
     Active Substance: OBETICHOLIC ACID
     Dosage: 10 MG, QD
     Route: 065
     Dates: start: 201706
  4. OCALIVA [Suspect]
     Active Substance: OBETICHOLIC ACID
     Dosage: 10 MG, QOD
     Route: 065
  5. URSOFALK [Concomitant]
     Active Substance: URSODIOL
     Dosage: 500 MG, BID
     Dates: start: 20171001
  6. URSOFALK [Concomitant]
     Active Substance: URSODIOL
     Dosage: 500 MG, BID
     Dates: start: 20170124
  7. OCALIVA [Suspect]
     Active Substance: OBETICHOLIC ACID
     Indication: BILIARY CIRRHOSIS PRIMARY
     Dosage: 10 MG, QW
     Route: 065
     Dates: start: 201612, end: 2017
  8. OCALIVA [Suspect]
     Active Substance: OBETICHOLIC ACID
     Dosage: 10 MG, QD
     Route: 065

REACTIONS (8)
  - Blood bilirubin increased [Unknown]
  - Child-Pugh-Turcotte score increased [Unknown]
  - Oestrogen receptor positive breast cancer [Unknown]
  - Blood albumin abnormal [Unknown]
  - Blood alkaline phosphatase increased [Unknown]
  - Cholangitis [Unknown]
  - Gamma-glutamyltransferase increased [Unknown]
  - Drug prescribing error [Unknown]

NARRATIVE: CASE EVENT DATE: 201702
